FAERS Safety Report 5498658-1 (Version None)
Quarter: 2007Q4

REPORT INFORMATION
  Report Type: 
  Country: None (occurrence: None)
  Receive Date: 20071026
  Receipt Date: 20071022
  Transmission Date: 20080405
  Serious: Yes (Other)
  Sender: FDA-Public Use
  Company Number: CH-JNJFOC-20071002427

PATIENT
  Sex: Female

DRUGS (4)
  1. DOXORUBICIN HCL [Suspect]
     Indication: BREAST CANCER METASTATIC
     Route: 042
  2. AVASTIN [Suspect]
     Indication: BREAST CANCER METASTATIC
     Route: 042
  3. NETIUM [Concomitant]
     Route: 048
  4. NETIUM [Concomitant]
     Route: 048

REACTIONS (4)
  - ALVEOLITIS [None]
  - COUGH [None]
  - DYSPNOEA [None]
  - PNEUMONITIS [None]
